FAERS Safety Report 19573924 (Version 1)
Quarter: 2021Q3

REPORT INFORMATION
  Report Type: Spontaneous
  Country: US (occurrence: US)
  Receive Date: 20210718
  Receipt Date: 20210718
  Transmission Date: 20211014
  Serious: Yes (Other)
  Sender: FDA-Public Use
  Company Number: US-009507513-2107USA004384

PATIENT
  Sex: Male

DRUGS (4)
  1. BASAGLAR KWIKPEN [Suspect]
     Active Substance: INSULIN GLARGINE
     Indication: TYPE 2 DIABETES MELLITUS
     Dosage: UNK
  2. METFORMIN [Suspect]
     Active Substance: METFORMIN HYDROCHLORIDE
     Indication: TYPE 2 DIABETES MELLITUS
     Dosage: 1000 MILLIGRAM, BID
  3. JANUVIA [Suspect]
     Active Substance: SITAGLIPTIN PHOSPHATE
     Indication: TYPE 2 DIABETES MELLITUS
     Dosage: 100 MILLIGRAM, QD
     Route: 048
  4. BASAGLAR KWIKPEN [Suspect]
     Active Substance: INSULIN GLARGINE
     Dosage: 12 U SQ DAILY HS
     Route: 058
     Dates: start: 20210704

REACTIONS (5)
  - Insulin C-peptide increased [Unknown]
  - Diabetes mellitus inadequate control [Unknown]
  - Hyperglycaemia [Unknown]
  - Diabetic retinopathy [Unknown]
  - Visual impairment [Unknown]

NARRATIVE: CASE EVENT DATE: 20210704
